FAERS Safety Report 15150137 (Version 1)
Quarter: 2018Q3

REPORT INFORMATION
  Report Type: Spontaneous
  Country: DE (occurrence: DE)
  Receive Date: 20180716
  Receipt Date: 20180716
  Transmission Date: 20181010
  Serious: Yes (Hospitalization)
  Sender: FDA-Public Use
  Company Number: PHHY2018DE040165

PATIENT
  Age: 67 Year
  Sex: Male
  Weight: 86 kg

DRUGS (13)
  1. PANTOZOL [Interacting]
     Active Substance: PANTOPRAZOLE SODIUM
     Indication: PROPHYLAXIS AGAINST GASTROINTESTINAL ULCER
     Dosage: 20 MG, UNK
     Route: 065
  2. EMEND [Concomitant]
     Active Substance: APREPITANT
     Dosage: UNK UNK, QW
     Route: 065
     Dates: start: 20150415
  3. CARBOPLATIN. [Suspect]
     Active Substance: CARBOPLATIN
     Dosage: UNK, Q3W (5AUC )
     Route: 065
     Dates: start: 20150729
  4. 5?FLUOROURACIL [Suspect]
     Active Substance: FLUOROURACIL
     Dosage: 1000 MG/M2, Q3W
     Route: 065
     Dates: start: 20150729
  5. EMEND [Concomitant]
     Active Substance: APREPITANT
     Indication: PREMEDICATION
     Dosage: UNK UNK, QW
     Route: 065
     Dates: start: 20150225
  6. 5?FLUOROURACIL [Suspect]
     Active Substance: FLUOROURACIL
     Indication: SQUAMOUS CELL CARCINOMA OF HEAD AND NECK
     Dosage: 1000 MG/M2, Q3W
     Route: 065
     Dates: start: 20150218
  7. ONDANSETRON [Concomitant]
     Active Substance: ONDANSETRON
     Dosage: UNK, QW
     Route: 065
     Dates: start: 20150415
  8. CARBOPLATIN. [Suspect]
     Active Substance: CARBOPLATIN
     Indication: SQUAMOUS CELL CARCINOMA OF HEAD AND NECK
     Dosage: UNK, Q3W(5AUC )
     Route: 065
     Dates: start: 20150218
  9. ERBITUX [Suspect]
     Active Substance: CETUXIMAB
     Indication: SQUAMOUS CELL CARCINOMA OF HEAD AND NECK
     Dosage: 400 MG/M2, QW
     Route: 042
     Dates: start: 20150218
  10. ONDANSETRON [Concomitant]
     Active Substance: ONDANSETRON
     Indication: PREMEDICATION
     Dosage: UNK, QW
     Route: 065
     Dates: start: 20150225
  11. ERBITUX [Suspect]
     Active Substance: CETUXIMAB
     Dosage: 400 MG/M2, QW
     Route: 042
     Dates: start: 20150722
  12. VALSARTAN. [Interacting]
     Active Substance: VALSARTAN
     Indication: HYPERTONIA
     Dosage: 80 MG, UNK
     Route: 065
  13. ZOFRAN [Interacting]
     Active Substance: ONDANSETRON HYDROCHLORIDE
     Indication: NAUSEA
     Dosage: 8 MG, UNK
     Route: 065

REACTIONS (2)
  - Syncope [Recovered/Resolved]
  - Dry skin [Unknown]

NARRATIVE: CASE EVENT DATE: 20150405
